FAERS Safety Report 7057720-2 (Version None)
Quarter: 2010Q4

REPORT INFORMATION
  Report Type: 
  Country: None (occurrence: None)
  Receive Date: 20101022
  Receipt Date: 20101014
  Transmission Date: 20110411
  Serious: Yes (Other)
  Sender: FDA-Public Use
  Company Number: US-PFIZER INC-2010131324

PATIENT
  Sex: Male
  Weight: 67.574 kg

DRUGS (2)
  1. CHANTIX [Suspect]
     Indication: SMOKING CESSATION THERAPY
     Dosage: 0.5 MG, 2X/DAY
     Route: 048
     Dates: start: 20101009
  2. ALBUTEROL [Concomitant]
     Indication: COUGH
     Dosage: UNK, AS NEEDED

REACTIONS (2)
  - GAIT DISTURBANCE [None]
  - TREMOR [None]
